FAERS Safety Report 21369950 (Version 1)
Quarter: 2022Q3

REPORT INFORMATION
  Report Type: Spontaneous
  Country: JP (occurrence: JP)
  Receive Date: 20220923
  Receipt Date: 20220923
  Transmission Date: 20221027
  Serious: Yes (Other)
  Sender: FDA-Public Use
  Company Number: JP-MALLINCKRODT-T202205069

PATIENT
  Sex: Female

DRUGS (1)
  1. AMITIZA [Suspect]
     Active Substance: LUBIPROSTONE
     Indication: Constipation
     Dosage: UNK
     Route: 048

REACTIONS (8)
  - Renal transplant [Unknown]
  - Uterine cancer [Unknown]
  - Irritable bowel syndrome [Unknown]
  - Cyst removal [Unknown]
  - Lymphoedema [Unknown]
  - Gastrointestinal hypomotility [Unknown]
  - Abdominal pain lower [Unknown]
  - Drug ineffective [Unknown]
